FAERS Safety Report 4977251-0 (Version None)
Quarter: 2006Q2

REPORT INFORMATION
  Report Type: 
  Country: None (occurrence: None)
  Receive Date: 20060419
  Receipt Date: 20051215
  Transmission Date: 20061013
  Serious: Yes (Hospitalization, Disabling)
  Sender: FDA-Public Use
  Company Number: US-MERCK-0512USA02592

PATIENT
  Age: 36 Year
  Sex: Female
  Weight: 61 kg

DRUGS (7)
  1. VIOXX [Suspect]
     Indication: ARTHRITIS
     Route: 048
     Dates: start: 20010601, end: 20021201
  2. VIOXX [Suspect]
     Indication: PAIN
     Route: 048
     Dates: start: 20010601, end: 20021201
  3. DIGOXIN [Concomitant]
     Indication: ATRIAL FIBRILLATION
     Route: 065
     Dates: start: 20000101
  4. CARDIZEM [Concomitant]
     Indication: ATRIAL FIBRILLATION
     Route: 065
     Dates: start: 20000101
  5. ADVIL [Concomitant]
     Indication: PAIN
     Route: 065
     Dates: start: 19950101
  6. MOTRIN [Concomitant]
     Indication: PAIN
     Route: 065
     Dates: start: 19950101
  7. PREDNISONE [Concomitant]
     Indication: PAIN
     Route: 065
     Dates: start: 19990101

REACTIONS (10)
  - ANKLE FRACTURE [None]
  - ASTHENIA [None]
  - ATRIAL FIBRILLATION [None]
  - CEREBROVASCULAR ACCIDENT [None]
  - GALLBLADDER DISORDER [None]
  - MENORRHAGIA [None]
  - MIGRAINE [None]
  - PANIC DISORDER [None]
  - UVEITIS [None]
  - VAGINAL HAEMORRHAGE [None]
